FAERS Safety Report 12121295 (Version 1)
Quarter: 2016Q1

REPORT INFORMATION
  Report Type: Spontaneous
  Country: US (occurrence: US)
  Receive Date: 20160226
  Receipt Date: 20160226
  Transmission Date: 20160526
  Serious: No
  Sender: FDA-Public Use
  Company Number: US-ALLERGAN-1421033US

PATIENT
  Age: 79 Year
  Sex: Female

DRUGS (5)
  1. REFRESH OPTIVE SENSITIVE [Suspect]
     Active Substance: CARBOXYMETHYLCELLULOSE SODIUM\GLYCERIN
     Indication: DRY EYE
     Dosage: 2 GTT, QHS
     Route: 047
  2. HYDROCHLOORTHIAZIDE [Concomitant]
     Active Substance: HYDROCHLOROTHIAZIDE
     Dosage: UNK
     Route: 048
  3. ATENOLOL. [Concomitant]
     Active Substance: ATENOLOL
     Dosage: UNK
     Route: 048
  4. PAMELOR [Concomitant]
     Active Substance: NORTRIPTYLINE HYDROCHLORIDE
     Dosage: UNK
     Route: 048
  5. XANAX [Concomitant]
     Active Substance: ALPRAZOLAM
     Indication: ANXIETY
     Dosage: UNK
     Route: 048

REACTIONS (1)
  - Eye discharge [Not Recovered/Not Resolved]
